FAERS Safety Report 5803388-X (Version None)
Quarter: 2008Q3

REPORT INFORMATION
  Report Type: 
  Country: None (occurrence: None)
  Receive Date: 20080708
  Receipt Date: 20080703
  Transmission Date: 20090109
  Serious: Yes (Death)
  Sender: FDA-Public Use
  Company Number: DE-BAYER-200816727GPV

PATIENT
  Age: 75 Year
  Sex: Male
  Weight: 70 kg

DRUGS (1)
  1. NEXAVAR [Suspect]
     Indication: HEPATIC NEOPLASM MALIGNANT
     Route: 048
     Dates: start: 20071101

REACTIONS (10)
  - ANOREXIA [None]
  - CANDIDIASIS [None]
  - CARCINOEMBRYONIC ANTIGEN INCREASED [None]
  - DEATH [None]
  - ENTEROCOLITIS [None]
  - GASTROINTESTINAL DISORDER [None]
  - NAUSEA [None]
  - SOMNOLENCE [None]
  - VOMITING [None]
  - WEIGHT DECREASED [None]
